FAERS Safety Report 23067289 (Version 1)
Quarter: 2023Q4

REPORT INFORMATION
  Report Type: Spontaneous
  Country: US (occurrence: US)
  Receive Date: 20231016
  Receipt Date: 20231016
  Transmission Date: 20240110
  Serious: No
  Sender: FDA-Public Use
  Company Number: US-TEVA-2023-US-2931321

PATIENT

DRUGS (1)
  1. GLIMEPIRIDE [Suspect]
     Active Substance: GLIMEPIRIDE
     Indication: Product used for unknown indication
     Dosage: FOR 21 YEARS?2000 MG
     Route: 065

REACTIONS (2)
  - Glycosylated haemoglobin increased [Unknown]
  - Renal disorder [Unknown]
